FAERS Safety Report 6724585-5 (Version None)
Quarter: 2010Q2

REPORT INFORMATION
  Report Type: 
  Country: None (occurrence: None)
  Receive Date: 20100513
  Receipt Date: 20100317
  Transmission Date: 20101027
  Serious: Yes (Hospitalization, Other)
  Sender: FDA-Public Use
  Company Number: PHEH2009US09526

PATIENT
  Sex: Female
  Weight: 83.9 kg

DRUGS (3)
  1. EXJADE [Suspect]
     Indication: MYELODYSPLASTIC SYNDROME
     Dosage: 1750 MG, QD
     Route: 048
     Dates: start: 20090427, end: 20090730
  2. EXJADE [Suspect]
     Dosage: 1750 MG, QD
     Route: 048
     Dates: start: 20091101, end: 20100301
  3. EXJADE [Suspect]
     Dosage: 1750 MG, QD
     Route: 048
     Dates: end: 20100402

REACTIONS (9)
  - ABASIA [None]
  - ARTHRALGIA [None]
  - ASPARTATE AMINOTRANSFERASE INCREASED [None]
  - HIP ARTHROPLASTY [None]
  - INTERVERTEBRAL DISC DEGENERATION [None]
  - LIVER FUNCTION TEST ABNORMAL [None]
  - NEURALGIA [None]
  - PAIN IN EXTREMITY [None]
  - TENDON PAIN [None]
